FAERS Safety Report 12534824 (Version 1)
Quarter: 2016Q3

REPORT INFORMATION
  Report Type: Report from Study
  Country: FR (occurrence: FR)
  Receive Date: 20160707
  Receipt Date: 20160707
  Transmission Date: 20161109
  Serious: Yes (Death, Hospitalization)
  Sender: FDA-Public Use
  Company Number: FR-ROCHE-1789226

PATIENT
  Sex: Female

DRUGS (3)
  1. CORTANCYL [Concomitant]
     Active Substance: PREDNISONE
     Route: 065
  2. METHOTREXATE. [Concomitant]
     Active Substance: METHOTREXATE
  3. RITUXIMAB [Suspect]
     Active Substance: RITUXIMAB
     Indication: RHEUMATOID ARTHRITIS
     Dosage: DAY 1?ON 22/MAY/2007 1 G (ON DAY 15)
     Route: 042
     Dates: start: 20070503

REACTIONS (3)
  - Bursitis [Recovered/Resolved]
  - Foot deformity [Recovered/Resolved]
  - Death [Fatal]

NARRATIVE: CASE EVENT DATE: 20071221
